FAERS Safety Report 10600672 (Version 3)
Quarter: 2015Q1

REPORT INFORMATION
  Report Type: Report from Study
  Country: US (occurrence: US)
  Receive Date: 20141124
  Receipt Date: 20150212
  Transmission Date: 20150720
  Serious: Yes (Hospitalization, Other)
  Sender: FDA-Public Use
  Company Number: US-BIOGENIDEC-2014BI122278

PATIENT
  Sex: Female

DRUGS (1)
  1. AVONEX [Suspect]
     Active Substance: INTERFERON BETA-1A
     Indication: MULTIPLE SCLEROSIS
     Route: 030
     Dates: start: 20000905, end: 2008

REACTIONS (14)
  - Vitiligo [Not Recovered/Not Resolved]
  - Weight decreased [Not Recovered/Not Resolved]
  - Pain [Recovered/Resolved with Sequelae]
  - Decreased immune responsiveness [Not Recovered/Not Resolved]
  - Pneumonia [Unknown]
  - Drug ineffective [Recovered/Resolved]
  - Bronchoscopy [Recovered/Resolved]
  - Vertigo [Not Recovered/Not Resolved]
  - Pulmonary fibrosis [Unknown]
  - Adrenal insufficiency [Unknown]
  - Gait disturbance [Not Recovered/Not Resolved]
  - Headache [Recovered/Resolved]
  - Anaemia [Not Recovered/Not Resolved]
  - Muscle spasms [Not Recovered/Not Resolved]

NARRATIVE: CASE EVENT DATE: 2000
